FAERS Safety Report 4369088-0 (Version None)
Quarter: 2004Q2

REPORT INFORMATION
  Report Type: 
  Country: None (occurrence: None)
  Receive Date: 20040527
  Receipt Date: 20040511
  Transmission Date: 20050107
  Serious: Yes (Hospitalization)
  Sender: FDA-Public Use
  Company Number: 193840

PATIENT
  Age: 49 Year
  Sex: Female

DRUGS (10)
  1. AVONEX [Suspect]
     Indication: MULTIPLE SCLEROSIS
     Dosage: 30 MCG QW IM
     Route: 030
     Dates: start: 19990601
  2. CARDIZEM CD [Concomitant]
  3. DARVOCET-N 100 [Concomitant]
  4. COUMADIN [Concomitant]
  5. PLAQUENIL [Concomitant]
  6. PREVACID [Concomitant]
  7. DETROL [Concomitant]
  8. ADVAIR [Concomitant]
  9. FLEXERIL [Concomitant]
  10. ALBUTEROL [Concomitant]

REACTIONS (2)
  - CATHETER RELATED COMPLICATION [None]
  - INFECTION [None]
